FAERS Safety Report 16379383 (Version 4)
Quarter: 2022Q4

REPORT INFORMATION
  Report Type: Spontaneous
  Country: US (occurrence: US)
  Receive Date: 20190531
  Receipt Date: 20221213
  Transmission Date: 20230113
  Serious: Yes (Hospitalization)
  Sender: FDA-Public Use
  Company Number: US-PFIZER INC-2019232880

PATIENT
  Age: 65 Year
  Sex: Female

DRUGS (5)
  1. PREMARIN [Suspect]
     Active Substance: ESTROGENS, CONJUGATED
     Dosage: UNK
  2. ACCUPRIL [Suspect]
     Active Substance: QUINAPRIL HYDROCHLORIDE
     Indication: Labile hypertension
     Dosage: 30 MG, 2X/DAY,(30MG TABLET, BY MOUTH, IN THE MORNING AND AT NIGHT)
     Route: 048
  3. DIFLUCAN [Suspect]
     Active Substance: FLUCONAZOLE
     Dosage: 50 MG
  4. DIFLUCAN [Suspect]
     Active Substance: FLUCONAZOLE
     Dosage: 100 MG
  5. METOPROLOL TARTRATE [Concomitant]
     Active Substance: METOPROLOL TARTRATE
     Dosage: UNK

REACTIONS (8)
  - Vomiting [Unknown]
  - Diarrhoea [Unknown]
  - Malaise [Unknown]
  - Blood pressure abnormal [Unknown]
  - Heart rate decreased [Unknown]
  - Food poisoning [Unknown]
  - Viral infection [Unknown]
  - Migraine [Unknown]
